FAERS Safety Report 4521772-1 (Version None)
Quarter: 2004Q4

REPORT INFORMATION
  Report Type: 
  Country: None (occurrence: None)
  Receive Date: 20041206
  Receipt Date: 20041119
  Transmission Date: 20050328
  Serious: Yes (Hospitalization)
  Sender: FDA-Public Use
  Company Number: 2004AL001580

PATIENT
  Age: 90 Year
  Sex: Male

DRUGS (5)
  1. SERAX [Suspect]
     Dosage: 45 MG; QD; PO
     Route: 048
  2. LAROXYL [Suspect]
     Dosage: BID; PO
     Route: 048
  3. PLAVIX [Suspect]
     Dosage: QD; PO
     Route: 048
     Dates: start: 20040920, end: 20041001
  4. LUMIGAN [Concomitant]
  5. TRUSOPT [Concomitant]

REACTIONS (2)
  - RASH ERYTHEMATOUS [None]
  - THROMBOCYTOPENIA [None]
